FAERS Safety Report 13259775 (Version 1)
Quarter: 2017Q1

REPORT INFORMATION
  Report Type: Spontaneous
  Country: IT (occurrence: IT)
  Receive Date: 20170222
  Receipt Date: 20170222
  Transmission Date: 20170428
  Serious: Yes (Death)
  Sender: FDA-Public Use
  Company Number: IT-TEVA-740846ACC

PATIENT
  Age: 43 Year

DRUGS (4)
  1. RECOMBINANT HUMAN GRANULOCYTE COLONY-STIMULATING FACTOR (RHUG-CSF) [Concomitant]
     Dosage: 10 MICROGRAM/KG DAILY;
     Route: 058
  2. THIOTEPA. [Suspect]
     Active Substance: THIOTEPA
     Indication: BONE MARROW CONDITIONING REGIMEN
     Dosage: 166 MG/M2 DAILY;
  3. CARBOPLATIN. [Suspect]
     Active Substance: CARBOPLATIN
     Indication: BONE MARROW CONDITIONING REGIMEN
     Dosage: 266 MG/M2 DAILY;
  4. ETOPOSIDE. [Suspect]
     Active Substance: ETOPOSIDE
     Indication: BONE MARROW CONDITIONING REGIMEN
     Dosage: 250 MG/M2 DAILY;

REACTIONS (2)
  - Acute respiratory distress syndrome [Fatal]
  - Septic shock [Fatal]
